FAERS Safety Report 12223461 (Version 1)
Quarter: 2016Q1

REPORT INFORMATION
  Report Type: Spontaneous
  Country: US (occurrence: US)
  Receive Date: 20160330
  Receipt Date: 20160330
  Transmission Date: 20160526
  Serious: Yes (Other)
  Sender: FDA-Public Use
  Company Number: ALCN2014US005808

PATIENT
  Age: 72 Year
  Sex: Female

DRUGS (1)
  1. TRAVATAN Z [Suspect]
     Active Substance: TRAVOPROST
     Indication: POSTOPERATIVE CARE
     Dosage: 1 GTT, QHS
     Route: 047
     Dates: start: 201406

REACTIONS (1)
  - Chest pain [Recovered/Resolved]
